FAERS Safety Report 10374650 (Version 1)
Quarter: 2014Q3

REPORT INFORMATION
  Report Type: Spontaneous
  Country: US (occurrence: None)
  Receive Date: 20140808
  Receipt Date: 20140808
  Transmission Date: 20150326
  Serious: Yes (Other)
  Sender: FDA-Public Use
  Company Number: None

PATIENT
  Sex: Male

DRUGS (1)
  1. ELOCON [Suspect]
     Active Substance: MOMETASONE FUROATE
     Dosage: AS NEEDED  APPLIED TO A SURFACE, USUALLY THE SKIN
     Route: 061

REACTIONS (5)
  - Discomfort [None]
  - Headache [None]
  - Insomnia [None]
  - Abnormal dreams [None]
  - Illusion [None]
